FAERS Safety Report 14382433 (Version 1)
Quarter: 2018Q1

REPORT INFORMATION
  Report Type: Spontaneous
  Country: US (occurrence: US)
  Receive Date: 20180112
  Receipt Date: 20180112
  Transmission Date: 20180509
  Serious: Yes (Death, Other)
  Sender: FDA-Public Use
  Company Number: US-SUNOVION-2018SUN000105

PATIENT
  Age: 57 Year
  Sex: Male

DRUGS (3)
  1. ESZOPICLONE. [Suspect]
     Active Substance: ESZOPICLONE
     Route: 048
  2. TRAMADOL. [Suspect]
     Active Substance: TRAMADOL
     Route: 065
  3. MORPHINE [Suspect]
     Active Substance: MORPHINE
     Route: 065

REACTIONS (1)
  - Completed suicide [Fatal]
